FAERS Safety Report 9425659 (Version 1)
Quarter: 2013Q3

REPORT INFORMATION
  Report Type: Spontaneous
  Country: BE (occurrence: BE)
  Receive Date: 20130729
  Receipt Date: 20130729
  Transmission Date: 20140515
  Serious: Yes (Life-Threatening, Hospitalization)
  Sender: FDA-Public Use
  Company Number: BE-MYLANLABS-2013S1016067

PATIENT
  Age: 72 Year
  Sex: Female

DRUGS (9)
  1. DULOXETINE [Suspect]
     Indication: NEURALGIA
     Dosage: 60MG DAILY
     Route: 065
  2. VERAPAMIL [Interacting]
     Route: 065
  3. VALTRAN [Interacting]
     Dosage: 4 DOSES OF 25MG
     Route: 065
  4. PARACETAMOL [Concomitant]
     Dosage: MAXIMUM 4G/DAY
     Route: 065
  5. INSULIN [Concomitant]
     Route: 065
  6. METFORMIN [Concomitant]
     Route: 065
  7. MONTELUKAST [Concomitant]
     Route: 065
  8. ENOXAPARIN SODIUM [Concomitant]
     Route: 065
  9. PANTOPRAZOLE [Concomitant]
     Route: 065

REACTIONS (4)
  - Hyperthermia [Recovered/Resolved]
  - Drug interaction [Recovered/Resolved]
  - Respiratory failure [Recovered/Resolved]
  - Coma [Recovered/Resolved]
